FAERS Safety Report 6822255-6 (Version None)
Quarter: 2010Q3

REPORT INFORMATION
  Report Type: 
  Country: None (occurrence: None)
  Receive Date: 20100707
  Receipt Date: 20100707
  Transmission Date: 20110219
  Serious: Yes (Hospitalization)
  Sender: FDA-Public Use
  Company Number: None

PATIENT
  Age: 31 Year
  Sex: Female
  Weight: 59.6 kg

DRUGS (3)
  1. DENILEUKIN DIFTITOX 300MCG/2ML LIGAND PHARMACEUTICALS [Suspect]
     Indication: ADULT T-CELL LYMPHOMA/LEUKAEMIA
     Dosage: 1140MCG DAILY X5 IV
     Route: 042
     Dates: start: 20100602, end: 20100606
  2. DENILEUKIN DIFTITOX 300MCG/2ML LIGAND PHARMACEUTICALS [Suspect]
     Indication: HUMAN T-CELL LYMPHOTROPIC VIRUS TYPE I INFECTION
     Dosage: 1140MCG DAILY X5 IV
     Route: 042
     Dates: start: 20100602, end: 20100606
  3. DENILEUKIN DIFTITOX 300MCG/2ML LIGAND PHARMACEUTICALS [Suspect]

REACTIONS (9)
  - COUGH [None]
  - CYTOMEGALOVIRUS COLITIS [None]
  - CYTOMEGALOVIRUS TEST POSITIVE [None]
  - DYSPNOEA [None]
  - LUNG INFILTRATION [None]
  - NAUSEA [None]
  - PULMONARY EMBOLISM [None]
  - PYREXIA [None]
  - VOMITING [None]
